FAERS Safety Report 15734451 (Version 1)
Quarter: 2018Q4

REPORT INFORMATION
  Report Type: Spontaneous
  Country: US (occurrence: US)
  Receive Date: 20181218
  Receipt Date: 20181218
  Transmission Date: 20190205
  Serious: No
  Sender: FDA-Public Use
  Company Number: US-MYLANLABS-2018M1092668

PATIENT
  Age: 10 Year
  Sex: Female
  Weight: 60.32 kg

DRUGS (4)
  1. QVAR [Concomitant]
     Active Substance: BECLOMETHASONE DIPROPIONATE
     Indication: ASTHMA
     Dosage: UNK
  2. LEVSIN [Suspect]
     Active Substance: HYOSCYAMINE SULFATE
     Indication: GASTROINTESTINAL PAIN
     Dosage: UNK UNK, ONE OR TWO TABLETS PRN
     Route: 048
     Dates: start: 201811, end: 201811
  3. CLATIN [Concomitant]
     Indication: SEASONAL ALLERGY
     Dosage: UNK
  4. ALBUTEROL                          /00139501/ [Concomitant]
     Active Substance: ALBUTEROL
     Indication: HYPERSENSITIVITY
     Dosage: UNK UNK, PRN

REACTIONS (4)
  - Hallucination [Unknown]
  - Headache [Recovered/Resolved]
  - Mood swings [Recovered/Resolved]
  - Vision blurred [Recovered/Resolved]

NARRATIVE: CASE EVENT DATE: 201811
